FAERS Safety Report 5287446-7 (Version None)
Quarter: 2007Q1

REPORT INFORMATION
  Report Type: 
  Country: None (occurrence: None)
  Receive Date: 20070116
  Receipt Date: 20060925
  Transmission Date: 20070707
  Serious: No
  Sender: FDA-Public Use
  Company Number: 2006SP003416

PATIENT
  Age: 80 Year
  Sex: Female
  Weight: 67.1324 kg

DRUGS (4)
  1. LUNESTA [Suspect]
     Indication: INSOMNIA
     Dosage: 3 MG HS ORAL
     Route: 048
     Dates: start: 20060101
  2. NEURONTIN [Concomitant]
  3. THYROID THERAPY [Concomitant]
  4. FOSAMAX [Concomitant]

REACTIONS (4)
  - DEPRESSION [None]
  - FEELING ABNORMAL [None]
  - MEMORY IMPAIRMENT [None]
  - REBOUND EFFECT [None]
